FAERS Safety Report 4598796-1 (Version None)
Quarter: 2005Q1

REPORT INFORMATION
  Report Type: 
  Country: None (occurrence: None)
  Receive Date: 20050301
  Receipt Date: 20050301
  Transmission Date: 20050727
  Serious: Yes (Hospitalization)
  Sender: FDA-Public Use
  Company Number: None

PATIENT
  Sex: Male

DRUGS (12)
  1. LISINOPRIL [Suspect]
     Indication: CARDIAC FAILURE CONGESTIVE
     Dosage: 10 MG DAILY ORAL
     Route: 048
  2. FUROSEMIDE [Suspect]
     Indication: CARDIAC FAILURE CONGESTIVE
     Dosage: 40 MG BID ORAL
     Route: 048
  3. CARVEDILOL [Concomitant]
  4. WARFARIN SODIUM [Concomitant]
  5. SIMVASTATIN [Concomitant]
  6. RANITIDINE [Concomitant]
  7. FERROUS SULFATE TAB [Concomitant]
  8. EPOGEN [Concomitant]
  9. DIGOXIN [Concomitant]
  10. CITALOPRAM [Concomitant]
  11. ASPIRIN [Concomitant]
  12. NITROGLYCERIN [Concomitant]

REACTIONS (1)
  - BLOOD CREATININE INCREASED [None]
